FAERS Safety Report 25012733 (Version 2)
Quarter: 2025Q1

REPORT INFORMATION
  Report Type: Report from Study
  Country: US (occurrence: US)
  Receive Date: 20250226
  Receipt Date: 20250319
  Transmission Date: 20250408
  Serious: No
  Sender: ACADIA PHARMACEUTICALS
  Company Number: US-ACADIA PHARMACEUTICALS INC.-ACA-2025-PIM-001713

PATIENT
  Sex: Male

DRUGS (13)
  1. NUPLAZID [Suspect]
     Active Substance: PIMAVANSERIN TARTRATE
     Indication: Parkinson^s disease
     Dosage: 34 MILLIGRAM, QD
     Route: 048
     Dates: start: 202405
  2. MOTRIN IB [Concomitant]
     Active Substance: IBUPROFEN
  3. LAMICTAL [Concomitant]
     Active Substance: LAMOTRIGINE
  4. ASPIRIN [Concomitant]
     Active Substance: ASPIRIN
  5. ATORVASTATIN CALCIUM [Concomitant]
     Active Substance: ATORVASTATIN CALCIUM
  6. FIBER LAX [Concomitant]
     Active Substance: CALCIUM POLYCARBOPHIL
  7. MEMANTINE [Concomitant]
     Active Substance: MEMANTINE
  8. VITAMIN B12 [Concomitant]
     Active Substance: CYANOCOBALAMIN
  9. METOPROLOL SUCCINATE [Concomitant]
     Active Substance: METOPROLOL SUCCINATE
  10. CALCIUM\CHOLECALCIFEROL [Concomitant]
     Active Substance: CALCIUM\CHOLECALCIFEROL
  11. AIRBORNE [Concomitant]
     Active Substance: HERBALS\MINERALS\VITAMINS
  12. VITAMINS [Concomitant]
     Active Substance: VITAMINS
  13. CARVEDILOL [Concomitant]
     Active Substance: CARVEDILOL

REACTIONS (1)
  - Intentional dose omission [Unknown]
